FAERS Safety Report 5264803-6 (Version None)
Quarter: 2007Q1

REPORT INFORMATION
  Report Type: 
  Country: None (occurrence: None)
  Receive Date: 20061124
  Receipt Date: 20051110
  Transmission Date: 20070707
  Serious: Yes (Other)
  Sender: FDA-Public Use
  Company Number: 2005UW17108

PATIENT
  Age: 40 Year
  Sex: Male
  Weight: 81.646 kg

DRUGS (2)
  1. ATACAND HCT [Suspect]
     Indication: HYPERTENSION
     Dosage: 32/12.5
     Dates: start: 20050301
  2. ATACAND HCT [Suspect]
     Indication: HYPERTENSION
     Dates: start: 20051104

REACTIONS (4)
  - FREQUENT BOWEL MOVEMENTS [None]
  - MEDICATION ERROR [None]
  - NAUSEA [None]
  - VISION BLURRED [None]
